FAERS Safety Report 14424019 (Version 1)
Quarter: 2018Q1

REPORT INFORMATION
  Report Type: Spontaneous
  Country: GB (occurrence: GB)
  Receive Date: 20180123
  Receipt Date: 20180123
  Transmission Date: 20180509
  Serious: Yes (Other)
  Sender: FDA-Public Use
  Company Number: PHHY2018GB007613

PATIENT
  Sex: Male

DRUGS (2)
  1. ATORVASTATIN [Concomitant]
     Active Substance: ATORVASTATIN
     Indication: PRODUCT USED FOR UNKNOWN INDICATION
     Route: 065
  2. BISOPROLOL FUMARATE. [Suspect]
     Active Substance: BISOPROLOL FUMARATE
     Indication: COMPLICATION ASSOCIATED WITH DEVICE
     Dosage: 2.5 MG, QD
     Route: 048

REACTIONS (5)
  - Gait inability [Unknown]
  - Tremor [Unknown]
  - Hypoaesthesia [Unknown]
  - Deafness [Unknown]
  - Paraesthesia [Unknown]
